FAERS Safety Report 11767535 (Version 4)
Quarter: 2016Q1

REPORT INFORMATION
  Report Type: Spontaneous
  Country: US (occurrence: US)
  Receive Date: 20151123
  Receipt Date: 20160222
  Transmission Date: 20160525
  Serious: Yes (Hospitalization, Other)
  Sender: FDA-Public Use
  Company Number: US-JNJFOC-20151113687

PATIENT
  Sex: Female
  Weight: 68.04 kg

DRUGS (1)
  1. ORTHO TRI CYCLEN [Suspect]
     Active Substance: ETHINYL ESTRADIOL\NORGESTIMATE
     Indication: CONTRACEPTION
     Dosage: ADMINISTRATED FROM 2003/ 2004 TO 2007/ 2008.
     Route: 048

REACTIONS (7)
  - Hospitalisation [Unknown]
  - Cholelithiasis [Recovered/Resolved]
  - Chest pain [Recovering/Resolving]
  - Vaginal infection [Not Recovered/Not Resolved]
  - Menstruation irregular [Unknown]
  - Cholecystitis acute [Recovered/Resolved]
  - Headache [Unknown]
